FAERS Safety Report 8382471-1 (Version None)
Quarter: 2012Q2

REPORT INFORMATION
  Report Type: 
  Country: None (occurrence: None)
  Receive Date: 20120524
  Receipt Date: 20120518
  Transmission Date: 20120825
  Serious: Yes (Other)
  Sender: FDA-Public Use
  Company Number: PHHY2012MX043454

PATIENT
  Sex: Male

DRUGS (3)
  1. ONBREZ [Concomitant]
     Dosage: 1 DF, DAILY
     Dates: start: 20120501
  2. DIOVAN HCT [Suspect]
     Indication: HYPERTENSION
     Dosage: 2 TABLETS, DAILY
     Dates: start: 20090901
  3. FORMOTEROL FUMARATE [Concomitant]
     Dosage: 1 DF, DAILY
     Dates: start: 20120501

REACTIONS (3)
  - SPEECH DISORDER [None]
  - BRONCHIAL OBSTRUCTION [None]
  - CHEST DISCOMFORT [None]
